FAERS Safety Report 16372840 (Version 5)
Quarter: 2019Q4

REPORT INFORMATION
  Report Type: Spontaneous
  Country: TR (occurrence: TR)
  Receive Date: 20190530
  Receipt Date: 20191003
  Transmission Date: 20200122
  Serious: Yes (Death, Hospitalization, Other)
  Sender: FDA-Public Use
  Company Number: TR-SEATTLE GENETICS-2019SGN01855

PATIENT
  Age: 58 Year
  Sex: Male
  Weight: 80 kg

DRUGS (2)
  1. ADCETRIS [Suspect]
     Active Substance: BRENTUXIMAB VEDOTIN
     Indication: NON-HODGKIN^S LYMPHOMA
     Dosage: 135 MILLIGRAM, Q3WEEKS
     Route: 042
     Dates: start: 20190114, end: 20190227
  2. TENOFOVIR [Concomitant]
     Active Substance: TENOFOVIR
     Indication: PROPHYLAXIS
     Dosage: 245 MILLIGRAM, QD
     Route: 065
     Dates: start: 20180809

REACTIONS (4)
  - Anterograde amnesia [Unknown]
  - Death [Fatal]
  - Disorientation [Unknown]
  - Off label use [Unknown]

NARRATIVE: CASE EVENT DATE: 20190314
